FAERS Safety Report 4561395-1 (Version None)
Quarter: 2005Q1

REPORT INFORMATION
  Report Type: 
  Country: None (occurrence: None)
  Receive Date: 20050126
  Receipt Date: 20050124
  Transmission Date: 20050727
  Serious: Yes (Hospitalization)
  Sender: FDA-Public Use
  Company Number: PHBS2005JP01185

PATIENT
  Age: 30 Year
  Sex: Female

DRUGS (1)
  1. NATEGLINIDE [Suspect]
     Dosage: 3420 MG, ONCE/SINGLE
     Route: 048

REACTIONS (4)
  - HYPOGLYCAEMIA [None]
  - INTENTIONAL MISUSE [None]
  - SOMNOLENCE [None]
  - SUICIDE ATTEMPT [None]
